FAERS Safety Report 15258051 (Version 1)
Quarter: 2018Q3

REPORT INFORMATION
  Report Type: Spontaneous
  Country: US (occurrence: US)
  Receive Date: 20180809
  Receipt Date: 20180809
  Transmission Date: 20181010
  Serious: Yes (Other)
  Sender: FDA-Public Use
  Company Number: US-AUROBINDO-AUR-APL-2018-040818

PATIENT
  Age: 38 Year
  Sex: Male

DRUGS (2)
  1. PREDNISONE. [Suspect]
     Active Substance: PREDNISONE
     Indication: EMPHYSEMA
     Dosage: 40 MILLIGRAM, DAILY
     Route: 065
  2. AZITHROMYCIN ANHYDROUS. [Concomitant]
     Active Substance: AZITHROMYCIN ANHYDROUS
     Indication: EMPHYSEMA
     Dosage: UNK
     Route: 065

REACTIONS (3)
  - Vision blurred [Recovered/Resolved]
  - Blindness [Recovered/Resolved]
  - Chorioretinopathy [Recovered/Resolved]
